FAERS Safety Report 14611989 (Version 2)
Quarter: 2018Q2

REPORT INFORMATION
  Report Type: Report from Study
  Country: US (occurrence: US)
  Receive Date: 20180308
  Receipt Date: 20180405
  Transmission Date: 20180711
  Serious: Yes (Hospitalization, Other)
  Sender: FDA-Public Use
  Company Number: US-GILEAD-2018-0324973

PATIENT
  Age: 34 Year
  Sex: Male

DRUGS (1)
  1. AMBRISENTAN [Suspect]
     Active Substance: AMBRISENTAN
     Indication: PRODUCT USED FOR UNKNOWN INDICATION
     Dosage: 10 MG, QD
     Route: 065

REACTIONS (3)
  - Catheterisation cardiac [Recovered/Resolved]
  - Intentional dose omission [Recovered/Resolved]
  - Procedural pneumothorax [Recovered/Resolved]

NARRATIVE: CASE EVENT DATE: 201803
